FAERS Safety Report 25638057 (Version 3)
Quarter: 2025Q3

REPORT INFORMATION
  Report Type: Spontaneous
  Country: EU (occurrence: EU)
  Receive Date: 20250804
  Receipt Date: 20250808
  Transmission Date: 20251021
  Serious: Yes (Life-Threatening, Hospitalization, Disabling)
  Sender: MYLAN
  Company Number: None

PATIENT
  Age: 45 Year
  Sex: Female
  Weight: 83 kg

DRUGS (4)
  1. DILTIAZEM [Suspect]
     Active Substance: DILTIAZEM
     Indication: Palpitations
     Dosage: 1 DOSAGE FORM,QD,(1X PER DAY)
     Dates: start: 20160410, end: 20160414
  2. DILTIAZEM [Suspect]
     Active Substance: DILTIAZEM
     Dosage: 1 DOSAGE FORM,QD,(1X PER DAY)
     Route: 065
     Dates: start: 20160410, end: 20160414
  3. DILTIAZEM [Suspect]
     Active Substance: DILTIAZEM
     Dosage: 1 DOSAGE FORM,QD,(1X PER DAY)
     Route: 065
     Dates: start: 20160410, end: 20160414
  4. DILTIAZEM [Suspect]
     Active Substance: DILTIAZEM
     Dosage: 1 DOSAGE FORM,QD,(1X PER DAY)
     Dates: start: 20160410, end: 20160414

REACTIONS (5)
  - Loss of consciousness [Recovered/Resolved]
  - Stevens-Johnson syndrome [Recovered/Resolved]
  - Hyperpyrexia [Recovered/Resolved]
  - Skin exfoliation [Recovered/Resolved]
  - Rash macular [Recovered/Resolved]
